FAERS Safety Report 23471897 (Version 2)
Quarter: 2024Q2

REPORT INFORMATION
  Report Type: Report from Study
  Country: PH (occurrence: PH)
  Receive Date: 20240202
  Receipt Date: 20240603
  Transmission Date: 20240715
  Serious: Yes (Death, Hospitalization, Other)
  Sender: FDA-Public Use
  Company Number: PH-TAKEDA-2024TUS007542

PATIENT
  Age: 60 Year
  Sex: Female

DRUGS (1)
  1. IXAZOMIB [Suspect]
     Active Substance: IXAZOMIB
     Indication: Plasma cell myeloma
     Dosage: 4 MILLIGRAM
     Route: 048
     Dates: start: 20231208

REACTIONS (9)
  - Death [Fatal]
  - Myocardial ischaemia [Recovered/Resolved]
  - Postoperative ileus [Recovered/Resolved]
  - Intestinal pseudo-obstruction [Recovered/Resolved]
  - Acute kidney injury [Recovered/Resolved]
  - Renal tubular necrosis [Recovered/Resolved]
  - Plasma cell myeloma refractory [Recovered/Resolved]
  - Heart failure with reduced ejection fraction [Recovered/Resolved]
  - Pneumonia [Recovered/Resolved]

NARRATIVE: CASE EVENT DATE: 20231211
